FAERS Safety Report 8882121 (Version 3)
Quarter: 2013Q1

REPORT INFORMATION
  Report Type: Report from Study
  Country: JP (occurrence: JP)
  Receive Date: 20121102
  Receipt Date: 20130222
  Transmission Date: 20140127
  Serious: Yes (Hospitalization, Other)
  Sender: FDA-Public Use
  Company Number: JP-ROCHE-802842

PATIENT
  Age: 55 Year
  Sex: Female
  Weight: 51 kg

DRUGS (12)
  1. ACTEMRA [Suspect]
     Indication: RHEUMATOID ARTHRITIS
     Dosage: DOSE : 395-400 MG
     Route: 041
     Dates: start: 20090109, end: 20090924
  2. ACTEMRA [Suspect]
     Route: 041
     Dates: start: 20091112, end: 20100513
  3. ACTEMRA [Suspect]
     Route: 041
     Dates: start: 20100709, end: 20100906
  4. ACTEMRA [Suspect]
     Route: 041
     Dates: start: 20101007, end: 20110210
  5. ACTEMRA [Suspect]
     Route: 041
     Dates: start: 20110316, end: 20110316
  6. PREDONINE [Concomitant]
     Indication: RHEUMATOID ARTHRITIS
     Route: 048
  7. PREDONINE [Concomitant]
     Route: 048
     Dates: start: 20090305, end: 20090401
  8. PREDONINE [Concomitant]
     Route: 048
     Dates: start: 20090402, end: 20090429
  9. PREDONINE [Concomitant]
     Route: 048
  10. THYRADIN-S [Concomitant]
     Indication: HYPOTHYROIDISM
     Route: 048
  11. FOSAMAX [Concomitant]
     Indication: OSTEOPOROSIS
     Dosage: DRUG REPORTED AS : FOSAMAC
     Route: 048
  12. LENDORMIN [Concomitant]
     Indication: INSOMNIA
     Route: 048

REACTIONS (4)
  - Herpes zoster [Recovered/Resolved]
  - Fibromyalgia [Unknown]
  - Cystitis [Recovered/Resolved]
  - Bronchitis [Recovered/Resolved]
